FAERS Safety Report 16940613 (Version 1)
Quarter: 2019Q4

REPORT INFORMATION
  Report Type: Spontaneous
  Country: NL (occurrence: NL)
  Receive Date: 20191021
  Receipt Date: 20191021
  Transmission Date: 20200122
  Serious: Yes (Other)
  Sender: FDA-Public Use
  Company Number: NVSC2019NL010404

PATIENT
  Sex: Female

DRUGS (2)
  1. LAPATINIB [Suspect]
     Active Substance: LAPATINIB
     Indication: BREAST CANCER
     Dosage: ESCALATING DOSES: 750, 1000, 1250 AND 1500 MG
     Route: 048
  2. GEMCITABINE. [Suspect]
     Active Substance: GEMCITABINE
     Indication: BREAST CANCER
     Dosage: ESCALATING DOSES: 750 AND 1000 MG/M2 ON DAYS 1, 8 AND 15)
     Route: 041

REACTIONS (2)
  - Alanine aminotransferase increased [Unknown]
  - Aspartate aminotransferase increased [Unknown]
